FAERS Safety Report 16669742 (Version 1)
Quarter: 2019Q3

REPORT INFORMATION
  Report Type: Spontaneous
  Country: IT (occurrence: IT)
  Receive Date: 20190805
  Receipt Date: 20190805
  Transmission Date: 20191004
  Serious: Yes (Other)
  Sender: FDA-Public Use
  Company Number: PHHY2019IT179340

PATIENT
  Age: 87 Year
  Sex: Female

DRUGS (5)
  1. CELECOXIB. [Interacting]
     Active Substance: CELECOXIB
     Indication: PROPHYLAXIS
     Route: 065
  2. ACETAMINOPHEN. [Interacting]
     Active Substance: ACETAMINOPHEN
     Indication: PROPHYLAXIS
     Dosage: UNK
     Route: 065
  3. TRAMADOL. [Interacting]
     Active Substance: TRAMADOL
     Indication: PROPHYLAXIS
     Route: 065
  4. WARFARIN [Interacting]
     Active Substance: WARFARIN
     Indication: PROPHYLAXIS
     Dosage: UNK
     Route: 065
  5. PANTOPRAZOLE [Suspect]
     Active Substance: PANTOPRAZOLE
     Indication: PROPHYLAXIS
     Route: 065

REACTIONS (3)
  - Melaena [Recovering/Resolving]
  - Haematemesis [Recovering/Resolving]
  - Labelled drug-drug interaction medication error [Unknown]
